FAERS Safety Report 16231732 (Version 6)
Quarter: 2020Q2

REPORT INFORMATION
  Report Type: Report from Study
  Country: DE (occurrence: DE)
  Receive Date: 20190424
  Receipt Date: 20200406
  Transmission Date: 20200713
  Serious: Yes (Hospitalization, Other)
  Sender: FDA-Public Use
  Company Number: DE-EMD SERONO-9087464

PATIENT
  Age: 51 Year
  Sex: Female
  Weight: 61 kg

DRUGS (5)
  1. VITAMIN B12 [Concomitant]
     Active Substance: CYANOCOBALAMIN
     Indication: PRODUCT USED FOR UNKNOWN INDICATION
  2. CHOLECALCIFEROL [Concomitant]
     Active Substance: CHOLECALCIFEROL
     Indication: PRODUCT USED FOR UNKNOWN INDICATION
  3. REBIF [Suspect]
     Active Substance: INTERFERON BETA-1A
     Indication: MULTIPLE SCLEROSIS
     Route: 058
     Dates: start: 2009, end: 201904
  4. METAMIZOLE                         /06276704/ [Concomitant]
     Active Substance: METAMIZOLE SODIUM
     Indication: PAIN
     Dates: start: 2018, end: 20190427
  5. REBIF [Suspect]
     Active Substance: INTERFERON BETA-1A
     Route: 058
     Dates: start: 201904, end: 20190429

REACTIONS (56)
  - Multiple sclerosis relapse [Unknown]
  - Product contamination microbial [Unknown]
  - Hypophagia [Unknown]
  - Vein disorder [Unknown]
  - Blood urea decreased [Unknown]
  - Blood lactate dehydrogenase increased [Unknown]
  - Fatigue [Unknown]
  - Abdominal abscess [Not Recovered/Not Resolved]
  - Blood alkaline phosphatase increased [Unknown]
  - Muscle atrophy [Unknown]
  - Gastroenteritis viral [Unknown]
  - Red blood cell count decreased [Unknown]
  - Abscess limb [Unknown]
  - Migraine [Unknown]
  - Aspartate aminotransferase increased [Unknown]
  - Urine ketone body present [Unknown]
  - Specific gravity urine abnormal [Unknown]
  - Impaired work ability [Not Recovered/Not Resolved]
  - Gait inability [Recovering/Resolving]
  - Dysuria [Unknown]
  - Insomnia [Unknown]
  - Haemoglobin decreased [Unknown]
  - Haematocrit decreased [Unknown]
  - Red blood cells urine positive [Unknown]
  - Oropharyngeal pain [Unknown]
  - Dysmetria [Unknown]
  - Pruritus [Unknown]
  - Platelet count decreased [Unknown]
  - Mucosal disorder [Unknown]
  - Pain in extremity [Unknown]
  - Paraesthesia [Unknown]
  - Hypoaesthesia [Unknown]
  - Extensor plantar response [Unknown]
  - Ataxia [Unknown]
  - Blood thyroid stimulating hormone increased [Unknown]
  - Suicidal ideation [Unknown]
  - Injection site abscess [Not Recovered/Not Resolved]
  - Loss of personal independence in daily activities [Unknown]
  - Gamma-glutamyltransferase increased [Unknown]
  - Injection site reaction [Unknown]
  - Blood sodium increased [Unknown]
  - Protein urine present [Unknown]
  - Contusion [Unknown]
  - Dysphagia [Unknown]
  - Varicose vein [Unknown]
  - Ageusia [Unknown]
  - Injection site indentation [Unknown]
  - Asthenia [Unknown]
  - Somatosensory evoked potentials abnormal [Unknown]
  - Tri-iodothyronine free decreased [Unknown]
  - Blood urine present [Recovered/Resolved]
  - Weight decreased [Unknown]
  - Dry mouth [Unknown]
  - Feeling abnormal [Unknown]
  - Stress [Unknown]
  - Uhthoff^s phenomenon [Unknown]

NARRATIVE: CASE EVENT DATE: 201607
